FAERS Safety Report 5671692-4 (Version None)
Quarter: 2008Q2

REPORT INFORMATION
  Report Type: 
  Country: None (occurrence: None)
  Receive Date: 20080229
  Receipt Date: 20080124
  Transmission Date: 20081010
  Serious: No
  Sender: FDA-Public Use
  Company Number: PHEH2008US01180

PATIENT
  Age: 46 Year
  Sex: Female

DRUGS (3)
  1. EXJADE [Suspect]
     Indication: IRON OVERLOAD
     Dosage: 1000 MG/DAY, ORAL
     Route: 048
     Dates: start: 20071023
  2. PROCRIT [Concomitant]
  3. BONIVA [Concomitant]

REACTIONS (2)
  - HAEMATURIA [None]
  - PROTEINURIA [None]
